FAERS Safety Report 20917629 (Version 10)
Quarter: 2022Q4

REPORT INFORMATION
  Report Type: Report from Study
  Country: US (occurrence: US)
  Receive Date: 20220606
  Receipt Date: 20221221
  Transmission Date: 20230112
  Serious: Yes (Hospitalization, Other)
  Sender: FDA-Public Use
  Company Number: US-ABBVIE-22K-163-4421915-00

PATIENT
  Sex: Male

DRUGS (7)
  1. RINVOQ [Suspect]
     Active Substance: UPADACITINIB
     Indication: Rheumatoid arthritis
     Dosage: STRENGTH 15 MG
     Route: 048
  2. RINVOQ [Suspect]
     Active Substance: UPADACITINIB
     Indication: Rheumatoid arthritis
     Route: 048
  3. RINVOQ [Suspect]
     Active Substance: UPADACITINIB
     Indication: Rheumatoid arthritis
     Dosage: STRENGTH 15 MG
     Route: 048
  4. PFIZER-BIONTECH COVID-19 VACCINE [Suspect]
     Active Substance: TOZINAMERAN
     Indication: COVID-19 immunisation
     Dosage: DOSE 1?1 IN ONCE
     Route: 030
     Dates: start: 20211020, end: 20211020
  5. PFIZER-BIONTECH COVID-19 VACCINE [Suspect]
     Active Substance: TOZINAMERAN
     Indication: COVID-19 immunisation
     Dosage: DOSE 2?1 IN ONCE
     Route: 030
     Dates: start: 20211110, end: 20211110
  6. PFIZER-BIONTECH COVID-19 VACCINE [Suspect]
     Active Substance: TOZINAMERAN
     Indication: COVID-19 immunisation
     Dosage: BOOSTER DOSE?1 IN ONCE
     Route: 030
     Dates: start: 20211220, end: 20211220
  7. PFIZER-BIONTECH COVID-19 VACCINE [Suspect]
     Active Substance: TOZINAMERAN
     Indication: COVID-19 immunisation
     Dosage: BOOSTER DOSE?1 IN ONCE
     Route: 030
     Dates: start: 20220511, end: 20220511

REACTIONS (14)
  - Fall [Recovered/Resolved]
  - Hip arthroplasty [Unknown]
  - Head injury [Recovering/Resolving]
  - Lower limb fracture [Recovering/Resolving]
  - Joint injury [Recovered/Resolved]
  - Lower limb fracture [Recovering/Resolving]
  - Lower limb fracture [Unknown]
  - Walking aid user [Unknown]
  - Peripheral swelling [Unknown]
  - Wheelchair user [Not Recovered/Not Resolved]
  - Joint injury [Unknown]
  - Localised infection [Unknown]
  - Pain in extremity [Unknown]
  - Liver injury [Unknown]

NARRATIVE: CASE EVENT DATE: 20200101
